FAERS Safety Report 10281978 (Version 3)
Quarter: 2014Q3

REPORT INFORMATION
  Report Type: Spontaneous
  Country: JP (occurrence: JP)
  Receive Date: 20140707
  Receipt Date: 20140805
  Transmission Date: 20150326
  Serious: No
  Sender: FDA-Public Use
  Company Number: JP-PFIZER INC-2014187237

PATIENT
  Age: 44 Year
  Sex: Female

DRUGS (2)
  1. NASANYL [Suspect]
     Active Substance: NAFARELIN ACETATE
     Indication: POLYMENORRHAGIA
     Dosage: UNK, 2X/DAY (IN THE MORNING AND EVENING)
     Route: 045
  2. NASANYL [Suspect]
     Active Substance: NAFARELIN ACETATE
     Indication: ANAEMIA

REACTIONS (3)
  - Drug ineffective [Recovering/Resolving]
  - Headache [Recovered/Resolved]
  - Musculoskeletal stiffness [Recovered/Resolved]

NARRATIVE: CASE EVENT DATE: 20140702
